FAERS Safety Report 24901039 (Version 7)
Quarter: 2025Q4

REPORT INFORMATION
  Report Type: Report from Study
  Country: US (occurrence: US)
  Receive Date: 20250129
  Receipt Date: 20251201
  Transmission Date: 20260118
  Serious: Yes (Death, Life-Threatening, Hospitalization, Other)
  Sender: EISAI
  Company Number: US-Eisai-EC-2025-183159

PATIENT
  Age: 76 Year
  Sex: Male
  Weight: 95.7 kg

DRUGS (2)
  1. LENVATINIB [Suspect]
     Active Substance: LENVATINIB
     Indication: Renal cell carcinoma
     Dosage: 28 DAYS, DOSE : UNKNOWN
     Route: 048
     Dates: start: 20241106, end: 20241204
  2. PEMBROLIZUMAB [Suspect]
     Active Substance: PEMBROLIZUMAB
     Indication: Renal cell carcinoma
     Route: 042
     Dates: start: 20241115, end: 20241115

REACTIONS (3)
  - Sepsis [Fatal]
  - Myocarditis [Unknown]
  - Anaemia [Unknown]

NARRATIVE: CASE EVENT DATE: 20250124
